FAERS Safety Report 10572861 (Version 1)
Quarter: 2014Q4

REPORT INFORMATION
  Report Type: Spontaneous
  Country: US (occurrence: None)
  Receive Date: 20141107
  Receipt Date: 20141107
  Transmission Date: 20150529
  Serious: Yes (Hospitalization)
  Sender: FDA-Public Use
  Company Number: None

PATIENT
  Age: 69 Year
  Sex: Male
  Weight: 114.7 kg

DRUGS (2)
  1. TORSEMIDE. [Suspect]
     Active Substance: TORSEMIDE
     Indication: HYPERTENSION
     Route: 048
     Dates: start: 20140911, end: 20140916
  2. TORSEMIDE. [Suspect]
     Active Substance: TORSEMIDE
     Indication: CARDIAC FAILURE CONGESTIVE
     Route: 048
     Dates: start: 20140911, end: 20140916

REACTIONS (6)
  - Acute kidney injury [None]
  - Drug administration error [None]
  - Dizziness postural [None]
  - Hypokalaemia [None]
  - Oedema peripheral [None]
  - Dehydration [None]

NARRATIVE: CASE EVENT DATE: 20140922
